FAERS Safety Report 9267163 (Version 1)
Quarter: 2013Q2

REPORT INFORMATION
  Report Type: Spontaneous
  Country: US (occurrence: US)
  Receive Date: 20130502
  Receipt Date: 20130502
  Transmission Date: 20140414
  Serious: Yes (Hospitalization, Other)
  Sender: FDA-Public Use
  Company Number: US-TEVA-401231USA

PATIENT
  Sex: Female

DRUGS (2)
  1. TREANDA [Suspect]
     Indication: LYMPHOMA
  2. RITUXIMAB [Concomitant]
     Indication: LYMPHOMA

REACTIONS (2)
  - Atrial fibrillation [Recovered/Resolved]
  - Ejection fraction decreased [Not Recovered/Not Resolved]
